APPROVED DRUG PRODUCT: PHOTOFRIN
Active Ingredient: PORFIMER SODIUM
Strength: 75MG/VIAL
Dosage Form/Route: INJECTABLE;INJECTION
Application: N020451 | Product #001
Applicant: PINNACLE BIOLOGICS INC
Approved: Dec 27, 1995 | RLD: No | RS: No | Type: RX